FAERS Safety Report 9775828 (Version 2)
Quarter: 2013Q4

REPORT INFORMATION
  Report Type: Spontaneous
  Country: US (occurrence: US)
  Receive Date: 20131220
  Receipt Date: 20131220
  Transmission Date: 20140711
  Serious: No
  Sender: FDA-Public Use
  Company Number: US201208006440

PATIENT
  Sex: Male

DRUGS (2)
  1. BYDUREON 2MG VIAL + SYRINGE [Suspect]
     Route: 058
     Dates: start: 20120522
  2. BYETTA PEN DISPOSABLE [Suspect]
     Route: 058

REACTIONS (5)
  - Abdominal distension [Unknown]
  - Vomiting [Unknown]
  - Injection site haemorrhage [Unknown]
  - Incorrect dose administered [Recovered/Resolved]
  - Product quality issue [Unknown]
